FAERS Safety Report 12735495 (Version 1)
Quarter: 2016Q3

REPORT INFORMATION
  Report Type: Spontaneous
  Country: BR (occurrence: BR)
  Receive Date: 20160912
  Receipt Date: 20160912
  Transmission Date: 20161109
  Serious: Yes (Other)
  Sender: FDA-Public Use
  Company Number: BR-PFIZER INC-2016416734

PATIENT
  Age: 95 Year
  Sex: Male

DRUGS (1)
  1. XALATAN [Suspect]
     Active Substance: LATANOPROST
     Indication: VISUAL IMPAIRMENT
     Dosage: 1 DROP (50 MCG OF LATANOPROST) EACH EYE AT NIGHT
     Route: 047
     Dates: start: 2010

REACTIONS (5)
  - Cognitive disorder [Not Recovered/Not Resolved]
  - Mobility decreased [Not Recovered/Not Resolved]
  - Asthenia [Not Recovered/Not Resolved]
  - Aphasia [Unknown]
  - Amnesia [Not Recovered/Not Resolved]
